FAERS Safety Report 6743296-3 (Version None)
Quarter: 2010Q2

REPORT INFORMATION
  Report Type: 
  Country: None (occurrence: None)
  Receive Date: 20100527
  Receipt Date: 20100513
  Transmission Date: 20101027
  Serious: No
  Sender: FDA-Public Use
  Company Number: US-JNJFOC-20100505659

PATIENT
  Sex: Male
  Weight: 78.02 kg

DRUGS (2)
  1. DURAGESIC-100 [Suspect]
     Indication: BACK PAIN
     Route: 062
     Dates: start: 20080101
  2. PAXIL [Concomitant]
     Indication: BACK PAIN
     Dosage: ONE PER DAY AT BEDTIME
     Route: 048

REACTIONS (3)
  - ABASIA [None]
  - DRUG DOSE OMISSION [None]
  - PAIN [None]
